FAERS Safety Report 9146722 (Version 1)
Quarter: 2013Q1

REPORT INFORMATION
  Report Type: Spontaneous
  Country: US (occurrence: None)
  Receive Date: 20130228
  Receipt Date: 20130228
  Transmission Date: 20140127
  Serious: Yes (Other)
  Sender: FDA-Public Use
  Company Number: None

PATIENT
  Sex: Female
  Weight: 74.84 kg

DRUGS (5)
  1. INVEGA [Suspect]
     Indication: MENTAL DISORDER
     Dosage: 234 MG EVERY 20TH OF MONTH
  2. INVEGA [Suspect]
     Indication: BIPOLAR DISORDER
     Dosage: 234 MG EVERY 20TH OF MONTH
  3. CLONAZEPAM [Concomitant]
  4. DONEPEEZIL [Concomitant]
  5. LITHIUM CARBONATE [Concomitant]

REACTIONS (10)
  - Depressed level of consciousness [None]
  - Muscle spasms [None]
  - Hypoaesthesia [None]
  - Vision blurred [None]
  - Drooling [None]
  - Crying [None]
  - Disturbance in attention [None]
  - Overdose [None]
  - Somnolence [None]
  - Hypoaesthesia [None]
